FAERS Safety Report 16086680 (Version 1)
Quarter: 2019Q1

REPORT INFORMATION
  Report Type: Spontaneous
  Country: US (occurrence: US)
  Receive Date: 20190318
  Receipt Date: 20190318
  Transmission Date: 20190418
  Serious: No
  Sender: FDA-Public Use
  Company Number: US-009507513-1902USA007894

PATIENT
  Sex: Male

DRUGS (6)
  1. TEGRETOL [Suspect]
     Active Substance: CARBAMAZEPINE
  2. FOCALIN [Suspect]
     Active Substance: DEXMETHYLPHENIDATE HYDROCHLORIDE
  3. ABILIFY [Suspect]
     Active Substance: ARIPIPRAZOLE
  4. PROZAC [Suspect]
     Active Substance: FLUOXETINE HYDROCHLORIDE
  5. ADDERALL [Suspect]
     Active Substance: AMPHETAMINE ASPARTATE\AMPHETAMINE SULFATE\DEXTROAMPHETAMINE SACCHARATE\DEXTROAMPHETAMINE SULFATE
     Route: 048
  6. REMERON [Suspect]
     Active Substance: MIRTAZAPINE
     Route: 048

REACTIONS (9)
  - Hereditary disorder [Unknown]
  - Drug ineffective [Unknown]
  - Adverse event [Unknown]
  - Tremor [Unknown]
  - Incontinence [Unknown]
  - Renal disorder [Unknown]
  - Attention deficit/hyperactivity disorder [Unknown]
  - Paranoia [Unknown]
  - Aggression [Unknown]
